FAERS Safety Report 14374520 (Version 3)
Quarter: 2018Q2

REPORT INFORMATION
  Report Type: Report from Study
  Country: US (occurrence: US)
  Receive Date: 20180111
  Receipt Date: 20180528
  Transmission Date: 20180711
  Serious: Yes (Hospitalization)
  Sender: FDA-Public Use
  Company Number: US-ROCHE-2052494

PATIENT
  Age: 72 Year
  Sex: Male
  Weight: 93.07 kg

DRUGS (2)
  1. ESBRIET [Suspect]
     Active Substance: PIRFENIDONE
     Indication: EMPHYSEMA
  2. ESBRIET [Suspect]
     Active Substance: PIRFENIDONE
     Indication: IDIOPATHIC PULMONARY FIBROSIS
     Dosage: 3 PILLS 3 TIMES A DAY?ONGOING:UNKNOWN
     Route: 065
     Dates: start: 201708

REACTIONS (6)
  - Bacterial infection [Unknown]
  - Drug ineffective [Unknown]
  - Malaise [Unknown]
  - Cataract [Unknown]
  - Haemoptysis [Not Recovered/Not Resolved]
  - Heart rate irregular [Unknown]

NARRATIVE: CASE EVENT DATE: 201801
